FAERS Safety Report 7308139-8 (Version None)
Quarter: 2011Q1

REPORT INFORMATION
  Report Type: 
  Country: None (occurrence: None)
  Receive Date: 20110223
  Receipt Date: 20110211
  Transmission Date: 20110831
  Serious: Yes (Other)
  Sender: FDA-Public Use
  Company Number: BR-ROCHE-694704

PATIENT
  Age: 31 Year
  Sex: Female
  Weight: 54 kg

DRUGS (1)
  1. ROACUTAN [Suspect]
     Route: 048
     Dates: start: 20090801, end: 20100206

REACTIONS (1)
  - ABORTION SPONTANEOUS [None]
